FAERS Safety Report 15571688 (Version 2)
Quarter: 2020Q1

REPORT INFORMATION
  Report Type: Spontaneous
  Country: US (occurrence: US)
  Receive Date: 20181031
  Receipt Date: 20200330
  Transmission Date: 20200409
  Serious: Yes (Death, Other)
  Sender: FDA-Public Use
  Company Number: US-ASTRAZENECA-2018SF40203

PATIENT
  Age: 771 Month
  Sex: Male
  Weight: 118.4 kg

DRUGS (55)
  1. JANUVIA [Suspect]
     Active Substance: SITAGLIPTIN PHOSPHATE
     Route: 065
     Dates: start: 2003, end: 201806
  2. METHOCARBAMOL. [Concomitant]
     Active Substance: METHOCARBAMOL
  3. FLUCONAZOLE. [Concomitant]
     Active Substance: FLUCONAZOLE
  4. LUNESTA [Concomitant]
     Active Substance: ESZOPICLONE
  5. NITROFURANTOIN. [Concomitant]
     Active Substance: NITROFURANTOIN
  6. BYETTA [Suspect]
     Active Substance: EXENATIDE
     Route: 065
     Dates: start: 2003, end: 201806
  7. HYDROCODONE [Concomitant]
     Active Substance: HYDROCODONE
  8. AZITHROMYCIN ANHYDROUS. [Concomitant]
     Active Substance: AZITHROMYCIN ANHYDROUS
  9. CEPHALEXIN. [Concomitant]
     Active Substance: CEPHALEXIN
  10. CYANOCOBALAMIN. [Concomitant]
     Active Substance: CYANOCOBALAMIN
  11. MAGNESIUM OXIDE. [Concomitant]
     Active Substance: MAGNESIUM OXIDE
  12. ONDANSETRON [Concomitant]
     Active Substance: ONDANSETRON
  13. VICTOZA [Suspect]
     Active Substance: LIRAGLUTIDE
     Route: 065
     Dates: start: 2003, end: 201806
  14. PIOGLITAZONE. [Concomitant]
     Active Substance: PIOGLITAZONE
  15. METOPROLOL TARTRATE. [Concomitant]
     Active Substance: METOPROLOL TARTRATE
  16. AMLODIPINE [Concomitant]
     Active Substance: AMLODIPINE BESYLATE
  17. CLONAZEPAM. [Concomitant]
     Active Substance: CLONAZEPAM
  18. LEVAQUIN [Concomitant]
     Active Substance: LEVOFLOXACIN
  19. COREG [Concomitant]
     Active Substance: CARVEDILOL
  20. VYTORIN [Concomitant]
     Active Substance: EZETIMIBE\SIMVASTATIN
  21. SIMVASTATIN. [Concomitant]
     Active Substance: SIMVASTATIN
  22. TAMSULOSIN [Concomitant]
     Active Substance: TAMSULOSIN
  23. AMOX-CLAV [Concomitant]
     Active Substance: AMOXICILLIN\CLAVULANATE POTASSIUM
  24. BACLOFEN. [Concomitant]
     Active Substance: BACLOFEN
  25. FUROSEMIDE. [Concomitant]
     Active Substance: FUROSEMIDE
  26. MORPHINE SULFATE. [Concomitant]
     Active Substance: MORPHINE SULFATE
  27. OXYCODONE [Concomitant]
     Active Substance: OXYCODONE
  28. PLAVIX [Concomitant]
     Active Substance: CLOPIDOGREL BISULFATE
  29. LISINOPRIL. [Concomitant]
     Active Substance: LISINOPRIL
  30. LANTUS SOLOSTAR [Concomitant]
     Active Substance: INSULIN GLARGINE
  31. CHOLESTYRAMINE. [Concomitant]
     Active Substance: CHOLESTYRAMINE
  32. DIPHENOXYLATE/ATROPINE [Concomitant]
     Active Substance: ATROPINE\DIPHENOXYLATE
  33. GLIMEPIRIDE. [Concomitant]
     Active Substance: GLIMEPIRIDE
  34. DIAZEPAM. [Concomitant]
     Active Substance: DIAZEPAM
  35. ENABLEX [Concomitant]
     Active Substance: DARIFENACIN HYDROBROMIDE
  36. MECLIZINE [Concomitant]
     Active Substance: MECLIZINE HYDROCHLORIDE
  37. METHADONE [Concomitant]
     Active Substance: METHADONE HYDROCHLORIDE
  38. PRAVASTATIN. [Concomitant]
     Active Substance: PRAVASTATIN
  39. BYETTA [Suspect]
     Active Substance: EXENATIDE
     Dosage: 10 MCG PEN
     Route: 058
     Dates: start: 20090828
  40. METFORMIN [Concomitant]
     Active Substance: METFORMIN HYDROCHLORIDE
  41. CLOPIDOGREL [Concomitant]
     Active Substance: CLOPIDOGREL BISULFATE
  42. AMITRIPTYLINE [Concomitant]
     Active Substance: AMITRIPTYLINE
  43. DETROL LA [Concomitant]
     Active Substance: TOLTERODINE TARTRATE
  44. PROMETHAZINE [Concomitant]
     Active Substance: PROMETHAZINE HYDROCHLORIDE
  45. BYETTA [Suspect]
     Active Substance: EXENATIDE
     Route: 065
     Dates: start: 2003, end: 201806
  46. ASPIRIN. [Concomitant]
     Active Substance: ASPIRIN
  47. PANTOPRAZOLE [Concomitant]
     Active Substance: PANTOPRAZOLE
  48. ALPRAZOLAM. [Concomitant]
     Active Substance: ALPRAZOLAM
  49. APIDRA INJECTION SANO [Concomitant]
  50. ATACAND HCT [Concomitant]
     Active Substance: CANDESARTAN CILEXETIL\HYDROCHLOROTHIAZIDE
  51. CIPROFLOXACIN. [Concomitant]
     Active Substance: CIPROFLOXACIN
  52. HUMALOG [Concomitant]
     Active Substance: INSULIN LISPRO
  53. INSULIN [Concomitant]
     Active Substance: INSULIN NOS
  54. LORAZEPAM. [Concomitant]
     Active Substance: LORAZEPAM
  55. PAROXETINE. [Concomitant]
     Active Substance: PAROXETINE

REACTIONS (2)
  - Adenocarcinoma pancreas [Unknown]
  - Pancreatic carcinoma [Fatal]

NARRATIVE: CASE EVENT DATE: 201611
